FAERS Safety Report 23536348 (Version 1)
Quarter: 2024Q1

REPORT INFORMATION
  Report Type: Spontaneous
  Country: US (occurrence: US)
  Receive Date: 20240219
  Receipt Date: 20240219
  Transmission Date: 20240409
  Serious: No
  Sender: FDA-Public Use
  Company Number: US-BRISTOL-MYERS SQUIBB COMPANY-2024-025852

PATIENT
  Age: 62 Year
  Sex: Female

DRUGS (3)
  1. REVLIMID [Suspect]
     Active Substance: LENALIDOMIDE
     Indication: Plasma cell myeloma
     Dosage: TOTAL 9 CYCLES
     Route: 048
     Dates: start: 20220112, end: 202208
  2. REVLIMID [Suspect]
     Active Substance: LENALIDOMIDE
     Route: 048
     Dates: start: 20230706, end: 202309
  3. REVLIMID [Suspect]
     Active Substance: LENALIDOMIDE
     Route: 048
     Dates: start: 20231229

REACTIONS (9)
  - Rash pruritic [Unknown]
  - Pruritus [Unknown]
  - Chest pain [Unknown]
  - Neck pain [Unknown]
  - Axillary pain [Unknown]
  - Dyspnoea [Unknown]
  - Oxygen saturation decreased [Unknown]
  - Off label use [Unknown]
  - Treatment noncompliance [Unknown]

NARRATIVE: CASE EVENT DATE: 20231230
